FAERS Safety Report 20607173 (Version 1)
Quarter: 2022Q1

REPORT INFORMATION
  Report Type: Spontaneous
  Country: US (occurrence: None)
  Receive Date: 20220316
  Receipt Date: 20220316
  Transmission Date: 20220423
  Serious: No
  Sender: FDA-Public Use
  Company Number: None

PATIENT
  Sex: Female
  Weight: 85.73 kg

DRUGS (9)
  1. KESIMPTA [Suspect]
     Active Substance: OFATUMUMAB
     Indication: Multiple sclerosis
     Dosage: FREQUENCY : MONTHLY;?
     Route: 058
  2. BACLOFEN [Concomitant]
     Active Substance: BACLOFEN
  3. DALFAMPRIDINE [Concomitant]
     Active Substance: DALFAMPRIDINE
  4. DESMOPRESSIN ACETATE [Concomitant]
  5. ADDERALL [Concomitant]
  6. VUMERITY [Concomitant]
     Active Substance: DIROXIMEL FUMARATE
  7. GABAPENTIN [Concomitant]
     Active Substance: GABAPENTIN
  8. NAPROXEN [Concomitant]
     Active Substance: NAPROXEN
  9. TOLTERODINE TARTRATE [Concomitant]

REACTIONS (1)
  - Influenza like illness [None]
